FAERS Safety Report 5066270-4 (Version None)
Quarter: 2006Q3

REPORT INFORMATION
  Report Type: 
  Country: None (occurrence: None)
  Receive Date: 20060731
  Receipt Date: 20060731
  Transmission Date: 20061208
  Serious: Yes (Other)
  Sender: FDA-Public Use
  Company Number: None

PATIENT
  Age: 47 Year
  Sex: Female
  Weight: 77.1115 kg

DRUGS (3)
  1. FLUVOXAMINE MALEATE 50 MG  IVAX/ ZENITH [Suspect]
     Indication: ANXIETY
     Dosage: 100 TO 150 MG PER DAY PO
     Route: 048
     Dates: start: 20060605, end: 20060612
  2. FLUVOXAMINE MALEATE 50 MG  IVAX/ ZENITH [Suspect]
     Indication: DEPRESSION
     Dosage: 100 TO 150 MG PER DAY PO
     Route: 048
     Dates: start: 20060605, end: 20060612
  3. FLUVOXAMINE MALEATE 100 MG BARR [Suspect]
     Dates: start: 20060719, end: 20060725

REACTIONS (14)
  - ASTHENIA [None]
  - CONDITION AGGRAVATED [None]
  - DEPRESSION [None]
  - DRUG INEFFECTIVE [None]
  - EMOTIONAL DISORDER [None]
  - FEELING ABNORMAL [None]
  - GENERALISED ANXIETY DISORDER [None]
  - HEADACHE [None]
  - INCORRECT DOSE ADMINISTERED [None]
  - MEMORY IMPAIRMENT [None]
  - OBSESSIVE THOUGHTS [None]
  - PHARMACEUTICAL PRODUCT COMPLAINT [None]
  - STOMACH DISCOMFORT [None]
  - TREATMENT NONCOMPLIANCE [None]
